FAERS Safety Report 20235183 (Version 1)
Quarter: 2021Q4

REPORT INFORMATION
  Report Type: Spontaneous
  Country: US (occurrence: US)
  Receive Date: 20211227
  Receipt Date: 20211227
  Transmission Date: 20220303
  Serious: No
  Sender: FDA-Public Use
  Company Number: US-BIOVITRUM-2021US12621

PATIENT
  Sex: Female
  Weight: 8 kg

DRUGS (9)
  1. SYNAGIS [Suspect]
     Active Substance: PALIVIZUMAB
     Indication: Illness
     Dosage: 100MG/1ML VL LIQUID
     Route: 030
  2. FAMOTIDINE 100 % POWDER [Concomitant]
  3. VITAMIN D-400 10 MCG TABLET [Concomitant]
  4. OMEPRAZOLE 100 % POWDER [Concomitant]
  5. REVATIO 20 MG TABLET [Concomitant]
  6. MAGNESIUM HYDROXIDE 100 % POWDER [Concomitant]
  7. TYLENOL 325 MG TABLET [Concomitant]
  8. ASPIRIN 100 % POWDER [Concomitant]
  9. FUROSEMIDE 10 MG/ML SOLUTION [Concomitant]

REACTIONS (2)
  - Nasopharyngitis [Unknown]
  - Off label use [Unknown]
